FAERS Safety Report 14059196 (Version 1)
Quarter: 2017Q4

REPORT INFORMATION
  Report Type: Report from Study
  Country: US (occurrence: US)
  Receive Date: 20171006
  Receipt Date: 20171006
  Transmission Date: 20180321
  Serious: No
  Sender: FDA-Public Use
  Company Number: US-AMGEN-USASL2017027719

PATIENT
  Age: 67 Year
  Sex: Female

DRUGS (5)
  1. TUMS [Concomitant]
     Active Substance: CALCIUM CARBONATE
     Dosage: UNK UNK, QD
  2. VITAMIN D3 [Concomitant]
     Active Substance: CHOLECALCIFEROL
     Dosage: 5000 UNIT, QD
  3. PROLIA [Suspect]
     Active Substance: DENOSUMAB
     Indication: OSTEOPOROSIS
     Dosage: 60 MG, Q6MO
     Route: 058
  4. CALCITROL [Concomitant]
     Active Substance: CALCITRIOL
     Dosage: 0.25 MUG, Q3WK
  5. PROLIA [Suspect]
     Active Substance: DENOSUMAB
     Indication: MENOPAUSE

REACTIONS (1)
  - Off label use [Unknown]
